FAERS Safety Report 9746691 (Version 2)
Quarter: 2013Q4

REPORT INFORMATION
  Report Type: Spontaneous
  Country: FR (occurrence: FR)
  Receive Date: 20131211
  Receipt Date: 20131211
  Transmission Date: 20140711
  Serious: Yes (Hospitalization, Disabling, Other)
  Sender: FDA-Public Use
  Company Number: FR-PFIZER INC-2013324607

PATIENT
  Age: 39 Year
  Sex: Female

DRUGS (2)
  1. TRINORDIOL [Suspect]
     Indication: CONTRACEPTION
     Dosage: UNK
     Route: 048
     Dates: end: 20130827
  2. DAILY [Suspect]
     Indication: CONTRACEPTION
     Dosage: UNK
     Route: 048
     Dates: end: 20130827

REACTIONS (3)
  - Acute sinusitis [Unknown]
  - Cerebral venous thrombosis [Recovered/Resolved with Sequelae]
  - Haemorrhagic stroke [Unknown]
